FAERS Safety Report 7280285-7 (Version None)
Quarter: 2011Q1

REPORT INFORMATION
  Report Type: 
  Country: None (occurrence: None)
  Receive Date: 20110208
  Receipt Date: 20101119
  Transmission Date: 20110831
  Serious: Yes (Hospitalization)
  Sender: FDA-Public Use
  Company Number: US-BAYER-2010-006787

PATIENT
  Sex: Female
  Weight: 70 kg

DRUGS (3)
  1. YAZ [Suspect]
     Indication: DYSMENORRHOEA
  2. YAZ [Suspect]
     Indication: MENORRHAGIA
     Dosage: UNK
     Route: 048
     Dates: start: 20100101, end: 20100201
  3. WARFARIN [Concomitant]
     Dosage: UNK
     Dates: start: 20100801

REACTIONS (5)
  - DEEP VEIN THROMBOSIS [None]
  - DYSPNOEA [None]
  - PAIN [None]
  - OEDEMA PERIPHERAL [None]
  - CHEST PAIN [None]
